FAERS Safety Report 5595908-8 (Version None)
Quarter: 2008Q1

REPORT INFORMATION
  Report Type: 
  Country: None (occurrence: None)
  Receive Date: 20080118
  Receipt Date: 20080111
  Transmission Date: 20080703
  Serious: Yes (Other)
  Sender: FDA-Public Use
  Company Number: NL-ASTRAZENECA-2008AC00177

PATIENT
  Age: 841 Month
  Sex: Male

DRUGS (7)
  1. SYMBICORT [Suspect]
     Indication: ASTHMA
     Dosage: 200/6 UG ONE INHALATION BID
     Route: 055
     Dates: start: 20071201
  2. SYMBICORT [Suspect]
     Indication: CHRONIC OBSTRUCTIVE PULMONARY DISEASE
     Dosage: 200/6 UG ONE INHALATION BID
     Route: 055
     Dates: start: 20071201
  3. NASONEX [Suspect]
     Indication: COUGH
     Dates: start: 20071201
  4. NASONEX [Suspect]
     Indication: PRODUCTIVE COUGH
     Dates: start: 20071201
  5. SIMVASTATIN [Concomitant]
     Indication: CARDIAC DISORDER
  6. LISINOPRIL [Concomitant]
     Indication: CARDIAC DISORDER
  7. ASCAL [Concomitant]
     Indication: CARDIAC DISORDER

REACTIONS (1)
  - BLOOD THYROID STIMULATING HORMONE INCREASED [None]
